FAERS Safety Report 22229220 (Version 1)
Quarter: 2023Q2

REPORT INFORMATION
  Report Type: Spontaneous
  Country: US (occurrence: None)
  Receive Date: 20230418
  Receipt Date: 20230418
  Transmission Date: 20230721
  Serious: No
  Sender: FDA-Public Use
  Company Number: None

PATIENT
  Age: 60 Year
  Sex: Female

DRUGS (1)
  1. COSENTYX [Suspect]
     Active Substance: SECUKINUMAB
     Indication: Psoriasis
     Dosage: OTHER FREQUENCY : ONCEWKFOR5WKSASDIR;?
     Route: 058
     Dates: start: 202008

REACTIONS (3)
  - Lower respiratory tract infection [None]
  - Therapy interrupted [None]
  - Pain in extremity [None]
